FAERS Safety Report 8267848-7 (Version None)
Quarter: 2012Q2

REPORT INFORMATION
  Report Type: 
  Country: None (occurrence: None)
  Receive Date: 20120404
  Receipt Date: 20120326
  Transmission Date: 20120825
  Serious: Yes (Other)
  Sender: FDA-Public Use
  Company Number: 2012MA004047

PATIENT
  Age: 49 Year
  Sex: Female

DRUGS (7)
  1. ACETAMINOPHEN [Concomitant]
  2. TRAMADOL HYDROCHLORIDE [Suspect]
     Indication: PAIN
     Dosage: PO
     Route: 048
     Dates: start: 20110102, end: 20120109
  3. THIAMINE HCL [Concomitant]
  4. PABRINEX [Concomitant]
  5. MULTI-VITAMIN [Concomitant]
  6. FLUOXETINE [Suspect]
     Indication: PRODUCT USED FOR UNKNOWN INDICATION
     Dates: start: 20110117
  7. FOLIC ACID [Concomitant]

REACTIONS (2)
  - CONVULSION [None]
  - HYPOGLYCAEMIA [None]
